FAERS Safety Report 11905283 (Version 1)
Quarter: 2016Q1

REPORT INFORMATION
  Report Type: Spontaneous
  Country: US (occurrence: US)
  Receive Date: 20160111
  Receipt Date: 20160111
  Transmission Date: 20160526
  Serious: No
  Sender: FDA-Public Use
  Company Number: US-ASTRAZENECA-2016SE00312

PATIENT
  Age: 41 Year
  Sex: Female

DRUGS (2)
  1. BYDUREON [Suspect]
     Active Substance: EXENATIDE
     Indication: DIABETES MELLITUS
     Route: 058
  2. BYDUREON [Suspect]
     Active Substance: EXENATIDE
     Indication: WEIGHT DECREASED
     Route: 058

REACTIONS (7)
  - Fatigue [Unknown]
  - Nausea [Unknown]
  - Energy increased [Unknown]
  - Decreased appetite [Unknown]
  - Back pain [Unknown]
  - Overdose [Unknown]
  - Product quality issue [Unknown]
